FAERS Safety Report 6938453-7 (Version None)
Quarter: 2010Q3

REPORT INFORMATION
  Report Type: 
  Country: None (occurrence: None)
  Receive Date: 20100824
  Receipt Date: 20100818
  Transmission Date: 20110219
  Serious: Yes (Hospitalization, Other)
  Sender: FDA-Public Use
  Company Number: DE-BRISTOL-MYERS SQUIBB COMPANY-15205461

PATIENT
  Age: 57 Year
  Sex: Male
  Weight: 59 kg

DRUGS (3)
  1. CETUXIMAB [Suspect]
     Indication: GASTROOESOPHAGEAL CANCER
     Dosage: RECENT INF ON 12-JUL-2010;TOTAL INF = 9.ONGOING.
     Route: 042
     Dates: start: 20100517
  2. CISPLATIN [Suspect]
     Indication: GASTROOESOPHAGEAL CANCER
     Dosage: RECENT INF ON 29JUN2010;ONGOING.
     Route: 042
     Dates: start: 20100517
  3. XELODA [Suspect]
     Indication: GASTROOESOPHAGEAL CANCER
     Dosage: ON DAY 1-15;RECENT INF ON 11JUL2010;ONGOING.
     Route: 048
     Dates: start: 20100517

REACTIONS (3)
  - DIARRHOEA [None]
  - FATIGUE [None]
  - WEIGHT DECREASED [None]
